FAERS Safety Report 5082138-1 (Version None)
Quarter: 2006Q3

REPORT INFORMATION
  Report Type: 
  Country: None (occurrence: None)
  Receive Date: 20060817
  Receipt Date: 20060621
  Transmission Date: 20061208
  Serious: Yes (Disabling, Other)
  Sender: FDA-Public Use
  Company Number: 2006GB01067

PATIENT
  Age: 60 Year
  Sex: Female

DRUGS (4)
  1. ARIMIDEX [Suspect]
     Indication: BREAST CANCER
     Route: 048
     Dates: start: 20060101, end: 20060301
  2. RAMIPRIL [Concomitant]
     Indication: HYPERTENSION
     Route: 048
  3. DOXAZOSIN [Concomitant]
     Indication: HYPERTENSION
     Route: 048
  4. NAPROXEN [Concomitant]
     Indication: ARTHRITIS

REACTIONS (2)
  - DERMATOMYOSITIS [None]
  - POLYMYOSITIS [None]
